FAERS Safety Report 17390106 (Version 1)
Quarter: 2020Q1

REPORT INFORMATION
  Report Type: Spontaneous
  Country: FR (occurrence: FR)
  Receive Date: 20200205
  Receipt Date: 20200205
  Transmission Date: 20200409
  Serious: Yes (Other)
  Sender: FDA-Public Use
  Company Number: FR-GLAXOSMITHKLINE-FR2020GSK014424

PATIENT
  Age: 47 Year
  Sex: Female
  Weight: 90 kg

DRUGS (3)
  1. ARTENIMOL + PIPERAQUINE [Concomitant]
     Indication: PLASMODIUM FALCIPARUM INFECTION
     Dosage: 1 DF,  320 MG/40 MG, DAILY
  2. HALOFANTRINE [Concomitant]
     Indication: MALARIA PROPHYLAXIS
     Dosage: UNK
     Dates: start: 2019
  3. MALARONE [Suspect]
     Active Substance: ATOVAQUONE\PROGUANIL HYDROCHLORIDE
     Indication: PLASMODIUM FALCIPARUM INFECTION
     Dosage: UNK UNK, 1D (4 TABLETS)
     Dates: start: 20190616

REACTIONS (4)
  - Drug resistance [Unknown]
  - Pathogen resistance [Unknown]
  - Gene mutation [Unknown]
  - Treatment failure [Unknown]
